FAERS Safety Report 7451942-4 (Version None)
Quarter: 2011Q2

REPORT INFORMATION
  Report Type: 
  Country: None (occurrence: None)
  Receive Date: 20110502
  Receipt Date: 20101216
  Transmission Date: 20111010
  Serious: Yes (Hospitalization)
  Sender: FDA-Public Use
  Company Number: PHHY2010AU86093

PATIENT
  Age: 37 Year
  Sex: Male

DRUGS (4)
  1. VENLAFAXINE [Suspect]
     Dosage: 450 MG/DAY
  2. VENLAFAXINE [Suspect]
     Dosage: 300 MG/DAY
  3. VENLAFAXINE [Suspect]
     Dosage: 200 MG/DAY
  4. QUETIAPINE [Concomitant]
     Dosage: 200 MG/DAY

REACTIONS (5)
  - MICTURITION URGENCY [None]
  - AFFECTIVE DISORDER [None]
  - POLLAKIURIA [None]
  - AUTONOMIC NERVOUS SYSTEM IMBALANCE [None]
  - BLADDER DILATATION [None]
